FAERS Safety Report 19301210 (Version 1)
Quarter: 2021Q2

REPORT INFORMATION
  Report Type: Spontaneous
  Country: BE (occurrence: BE)
  Receive Date: 20210525
  Receipt Date: 20210525
  Transmission Date: 20210717
  Serious: Yes (Other)
  Sender: FDA-Public Use
  Company Number: BE-MYLANLABS-2021M1029991

PATIENT
  Age: 82 Year
  Sex: Male

DRUGS (10)
  1. CO?LISINOPRIL [Concomitant]
     Active Substance: HYDROCHLOROTHIAZIDE\LISINOPRIL
     Dosage: ONCE DAILY IN MORNING
     Route: 048
  2. SPIRONOLACTONE. [Concomitant]
     Active Substance: SPIRONOLACTONE
     Dosage: 25 1/2 TAB AT NIGHT
     Route: 048
  3. ISOTEN [Concomitant]
     Active Substance: BISOPROLOL FUMARATE
     Dosage: 1/2 ONCE DAILY AT NIGHT
     Route: 048
  4. MEDROL [Concomitant]
     Active Substance: METHYLPREDNISOLONE
     Indication: CHRONIC OBSTRUCTIVE PULMONARY DISEASE
     Dosage: AS NEEDED
     Route: 048
  5. AZITHROMYCINE EG [Concomitant]
     Active Substance: AZITHROMYCIN DIHYDRATE
     Indication: CHRONIC OBSTRUCTIVE PULMONARY DISEASE
     Dosage: UNK, 3XW
     Route: 048
     Dates: start: 2009
  6. TAMSULOSIN MYLAN [Suspect]
     Active Substance: TAMSULOSIN
     Indication: PRODUCT USED FOR UNKNOWN INDICATION
     Dosage: ONE SINGLE INTAKE
     Route: 048
     Dates: start: 20210508, end: 20210508
  7. CLARITHROMYCINE MYLAN [Concomitant]
     Active Substance: CLARITHROMYCIN
     Dosage: FOR 12 YEARS
     Route: 048
  8. ELIQUIS [Concomitant]
     Active Substance: APIXABAN
     Dosage: ONCE DAILY AT NIGHT
     Route: 048
  9. SERETIDE [Concomitant]
     Active Substance: FLUTICASONE PROPIONATE\SALMETEROL XINAFOATE
     Indication: CHRONIC OBSTRUCTIVE PULMONARY DISEASE
     Dosage: 50/500
     Route: 055
  10. SPIRIVA [Concomitant]
     Active Substance: TIOTROPIUM BROMIDE MONOHYDRATE
     Indication: CHRONIC OBSTRUCTIVE PULMONARY DISEASE
     Dosage: UNK
     Route: 055

REACTIONS (2)
  - Malaise [Recovered/Resolved]
  - Loss of consciousness [Recovered/Resolved]

NARRATIVE: CASE EVENT DATE: 20210509
